FAERS Safety Report 6262625-0 (Version None)
Quarter: 2009Q3

REPORT INFORMATION
  Report Type: 
  Country: None (occurrence: None)
  Receive Date: 20090709
  Receipt Date: 20090629
  Transmission Date: 20100115
  Serious: Yes (Death, Other)
  Sender: FDA-Public Use
  Company Number: TR-AVENTIS-200913930EU

PATIENT
  Age: 67 Year
  Sex: Male

DRUGS (5)
  1. ECOPRIN [Suspect]
  2. LASIX [Suspect]
  3. CORDARONE [Suspect]
  4. COVERSYL                           /00790701/ [Suspect]
  5. ENDOL                              /00003801/ [Suspect]

REACTIONS (2)
  - SEPTIC SHOCK [None]
  - TOXIC EPIDERMAL NECROLYSIS [None]
